FAERS Safety Report 9254676 (Version 2)
Quarter: 2014Q1

REPORT INFORMATION
  Report Type: Spontaneous
  Country: FR (occurrence: FR)
  Receive Date: 20130425
  Receipt Date: 20140203
  Transmission Date: 20141002
  Serious: Yes (Life-Threatening, Hospitalization, Other)
  Sender: FDA-Public Use
  Company Number: FR-UCBSA-083933

PATIENT
  Age: 78 Year
  Sex: Female
  Weight: 50 kg

DRUGS (12)
  1. NEUPRO [Suspect]
     Indication: PARKINSON^S DISEASE
     Dosage: DOSE: 4 MG/DAILY
     Route: 062
     Dates: start: 20130219, end: 201303
  2. HYDREA [Concomitant]
     Indication: POLYCYTHAEMIA VERA
     Route: 048
  3. HYDREA [Concomitant]
     Indication: POLYCYTHAEMIA VERA
  4. ASPEGIC [Concomitant]
     Dosage: UNKNOWN DOSE
     Route: 048
  5. AZILECT [Concomitant]
     Indication: PARKINSON^S DISEASE
     Route: 048
  6. SINEMET [Concomitant]
     Indication: PARKINSON^S DISEASE
  7. SINEMET [Concomitant]
     Indication: PARKINSON^S DISEASE
     Route: 048
  8. ACTONEL [Concomitant]
     Dosage: 1 TABLET DAILY
  9. DAFALGAN [Concomitant]
     Dosage: 100MG IF REQUIRED
  10. AUGMENTIN [Concomitant]
     Dates: start: 2013
  11. XAGRID [Concomitant]
     Dates: start: 2013
  12. LEPONEX [Concomitant]
     Dates: start: 2013

REACTIONS (8)
  - Lung disorder [Unknown]
  - Walking disability [Unknown]
  - Faecaloma [Unknown]
  - Escherichia urinary tract infection [Unknown]
  - Urinary tract infection enterococcal [Unknown]
  - Rash maculo-papular [Recovered/Resolved]
  - Thrombocytopenia [Recovering/Resolving]
  - Confusional state [Not Recovered/Not Resolved]
